FAERS Safety Report 5250141-4 (Version None)
Quarter: 2007Q1

REPORT INFORMATION
  Report Type: 
  Country: None (occurrence: None)
  Receive Date: 20070228
  Receipt Date: 20060313
  Transmission Date: 20070707
  Serious: No
  Sender: FDA-Public Use
  Company Number: US-GLAXOSMITHKLINE-A0593352A

PATIENT
  Age: 32 Year
  Sex: Female

DRUGS (2)
  1. LAMICTAL [Suspect]
     Indication: BIPOLAR DISORDER
     Dosage: 100MG SEE DOSAGE TEXT
     Route: 048
     Dates: start: 20050927, end: 20060109
  2. TRILEPTAL [Concomitant]
     Dates: start: 20050907

REACTIONS (2)
  - LYMPHADENOPATHY [None]
  - RASH [None]
